FAERS Safety Report 8793915 (Version 1)
Quarter: 2012Q4

REPORT INFORMATION
  Report Type: 
  Country: US (occurrence: US)
  Receive Date: 20120917
  Receipt Date: 20120917
  Transmission Date: 20130627
  Serious: Yes (Death)
  Sender: FDA-Public Use
  Company Number: US-PURDUE-USA-2012-0093052

PATIENT
  Age: 37 Year
  Sex: Male

DRUGS (2)
  1. TRAMADOL (SIMILAR TO NDA 21-745) [Suspect]
     Indication: PAIN
     Route: 048
  2. UNSPECIFIED INGREDIENT MEDICATIONS [Suspect]
     Indication: PRODUCT USED FOR UNKNOWN INDICATION

REACTIONS (10)
  - Pulse absent [Fatal]
  - Apnoea [Fatal]
  - Drug ineffective [Unknown]
  - Cardiac arrest [None]
  - Screaming [None]
  - Blood glucose increased [None]
  - Coronary artery stenosis [None]
  - Rib fracture [None]
  - Blood ethanol increased [None]
  - Drug screen positive [None]
